FAERS Safety Report 7088417-0 (Version None)
Quarter: 2010Q4

REPORT INFORMATION
  Report Type: 
  Country: None (occurrence: None)
  Receive Date: 20101029
  Receipt Date: 20101018
  Transmission Date: 20110411
  Serious: Yes (Other)
  Sender: FDA-Public Use
  Company Number: DSA_44160_2010

PATIENT
  Age: 70 Year
  Sex: Female

DRUGS (5)
  1. CARDIZEM [Suspect]
     Indication: HYPERTENSION
     Dosage: (DF)
  2. PRILOSEC [Suspect]
     Indication: GASTROOESOPHAGEAL REFLUX DISEASE
     Dosage: (DF ORAL)
     Route: 048
  3. XALATAN [Suspect]
     Indication: INTRAOCULAR PRESSURE INCREASED
     Dosage: (1 DROP IN LEFT EYE AT BEDTIME INTRAOCULAR)
     Route: 031
     Dates: start: 20100914
  4. LEVOTHYROXINE SODIUM [Concomitant]
  5. AMIODARONE [Concomitant]

REACTIONS (1)
  - DYSPEPSIA [None]
